FAERS Safety Report 18146396 (Version 2)
Quarter: 2020Q3

REPORT INFORMATION
  Report Type: Report from Study
  Country: ES (occurrence: ES)
  Receive Date: 20200813
  Receipt Date: 20200821
  Transmission Date: 20201103
  Serious: Yes (Death, Hospitalization)
  Sender: FDA-Public Use
  Company Number: ES-ACTELION-A-CH2019-196734

PATIENT
  Age: 52 Year
  Sex: Female
  Weight: 65 kg

DRUGS (17)
  1. VELETRI [Suspect]
     Active Substance: EPOPROSTENOL
     Indication: PULMONARY VENO-OCCLUSIVE DISEASE
     Dosage: 8 UNK
     Route: 042
     Dates: start: 20190223
  2. SPIRONOLACTONE. [Concomitant]
     Active Substance: SPIRONOLACTONE
     Indication: PULMONARY ARTERIAL HYPERTENSION
     Dosage: UNK
     Route: 048
     Dates: start: 20190211
  3. FUROSEMIDE. [Concomitant]
     Active Substance: FUROSEMIDE
     Indication: PULMONARY ARTERIAL HYPERTENSION
     Dosage: UNK
     Route: 048
     Dates: start: 20190211
  4. LORAZEPAM. [Concomitant]
     Active Substance: LORAZEPAM
  5. METHADONE [Concomitant]
     Active Substance: METHADONE HYDROCHLORIDE
  6. CITALOPRAM [Concomitant]
     Active Substance: CITALOPRAM HYDROBROMIDE
     Indication: DEPRESSION
     Dosage: UNK
     Route: 048
     Dates: start: 20190211
  7. VELETRI [Suspect]
     Active Substance: EPOPROSTENOL
     Dosage: 6 UNK
     Route: 042
     Dates: start: 20190214, end: 20190222
  8. METOCLOPRAMIDE. [Concomitant]
     Active Substance: METOCLOPRAMIDE
     Dosage: UNK
     Route: 048
     Dates: start: 20190211
  9. LORMETAZEPAM [Concomitant]
     Active Substance: LORMETAZEPAM
     Indication: DEPRESSION
     Dosage: UNK
     Route: 048
     Dates: start: 20190211
  10. PARACETAMOL [Concomitant]
     Active Substance: ACETAMINOPHEN
     Dosage: UNK
     Route: 048
     Dates: start: 20190211
  11. CLOMETIAZOL [Concomitant]
     Active Substance: CLOMETHIAZOLE
     Indication: DEPRESSION
     Dosage: UNK
     Route: 048
     Dates: start: 20190211
  12. OMEPRAZOL [Concomitant]
     Active Substance: OMEPRAZOLE
     Dosage: UNK
     Route: 048
     Dates: start: 20190211
  13. LOPERAMIDE [Concomitant]
     Active Substance: LOPERAMIDE
     Dosage: UNK
     Route: 048
     Dates: start: 20190211
  14. GLYCOPYRRONIUM BROMIDE W/INDACATEROL MALEATE [Concomitant]
     Active Substance: GLYCOPYRROLATE\INDACATEROL MALEATE
     Indication: CHRONIC OBSTRUCTIVE PULMONARY DISEASE
     Dosage: UNK
     Dates: start: 20190211
  15. LEVOTIROXINA [Concomitant]
     Active Substance: LEVOTHYROXINE
     Indication: HYPOTHYROIDISM
     Dosage: UNK
     Route: 048
     Dates: start: 20190211
  16. MIDAZOLAM. [Concomitant]
     Active Substance: MIDAZOLAM
     Indication: SEDATION
  17. QUETIAPINE. [Concomitant]
     Active Substance: QUETIAPINE

REACTIONS (22)
  - Pyrexia [Recovered/Resolved]
  - Inflammation [Recovered/Resolved]
  - Hypogammaglobulinaemia [Unknown]
  - Lung infiltration [Unknown]
  - Acute pulmonary oedema [Fatal]
  - Device related infection [Recovered/Resolved]
  - Skin injury [Recovered/Resolved]
  - COVID-19 pneumonia [Fatal]
  - Lung transplant [Unknown]
  - Pulmonary hypertension [Unknown]
  - Respiratory failure [Unknown]
  - Acute kidney injury [Fatal]
  - Metabolic acidosis [Fatal]
  - Complications of transplanted lung [Fatal]
  - Weaning failure [Unknown]
  - Tracheostomy [Unknown]
  - Continuous haemodiafiltration [Unknown]
  - Immunosuppressant drug level decreased [Unknown]
  - Staphylococcus test positive [Recovered/Resolved]
  - Acute respiratory distress syndrome [Fatal]
  - Transplant rejection [Unknown]
  - Catheter placement [Recovered/Resolved]

NARRATIVE: CASE EVENT DATE: 20190827
